FAERS Safety Report 24611610 (Version 1)
Quarter: 2024Q4

REPORT INFORMATION
  Report Type: Spontaneous
  Country: GB (occurrence: GB)
  Receive Date: 20241113
  Receipt Date: 20241113
  Transmission Date: 20250115
  Serious: Yes (Other)
  Sender: RANBAXY
  Company Number: GB-SUN PHARMACEUTICAL INDUSTRIES LTD-2024RR-477056

PATIENT
  Age: 73 Year
  Sex: Male
  Weight: 62 kg

DRUGS (1)
  1. ATORVASTATIN [Suspect]
     Active Substance: ATORVASTATIN
     Indication: Diabetes mellitus
     Dosage: 20MG ONCE A DAY AT NIGHT
     Route: 065

REACTIONS (1)
  - Diplopia [Not Recovered/Not Resolved]
